FAERS Safety Report 8371603-7 (Version None)
Quarter: 2012Q2

REPORT INFORMATION
  Report Type: 
  Country: None (occurrence: None)
  Receive Date: 20120518
  Receipt Date: 20120509
  Transmission Date: 20120825
  Serious: No
  Sender: FDA-Public Use
  Company Number: US-ASTRAZENECA-2012SE29867

PATIENT
  Age: 68 Year
  Sex: Female
  Weight: 68 kg

DRUGS (2)
  1. NEXIUM [Suspect]
     Route: 048
  2. SYMBICORT [Suspect]
     Dosage: 160/4.5 MCG, TWO PUFFS BID
     Route: 055

REACTIONS (1)
  - DEMENTIA ALZHEIMER'S TYPE [None]
